FAERS Safety Report 8823340 (Version 1)
Quarter: 2012Q4

REPORT INFORMATION
  Report Type: 
  Country: IT (occurrence: IT)
  Receive Date: 20121003
  Receipt Date: 20121003
  Transmission Date: 20130627
  Serious: Yes (Hospitalization)
  Sender: FDA-Public Use
  Company Number: IT-TEVA-361671ISR

PATIENT
  Age: 28 Year
  Sex: Male

DRUGS (1)
  1. OLANZAPINA TEVA [Suspect]
     Indication: SCHIZOPHRENIA, DISORGANISED TYPE
     Dosage: 20 Milligram Daily;
     Route: 048
     Dates: start: 20120420, end: 20120911

REACTIONS (4)
  - Psychomotor hyperactivity [Recovering/Resolving]
  - Self injurious behaviour [Recovering/Resolving]
  - Tracheitis [Recovering/Resolving]
  - Cough [Recovering/Resolving]
